FAERS Safety Report 20558715 (Version 1)
Quarter: 2022Q1

REPORT INFORMATION
  Report Type: Spontaneous
  Country: US (occurrence: None)
  Receive Date: 20220304
  Receipt Date: 20220304
  Transmission Date: 20220423
  Serious: No
  Sender: FDA-Public Use
  Company Number: None

PATIENT
  Age: 59 Year
  Sex: Female

DRUGS (1)
  1. TREMFYA [Suspect]
     Active Substance: GUSELKUMAB
     Indication: Psoriasis
     Dosage: INJECT 100MG SUBCUTANEOUSLY  AT  WEEK  0 AND WEEK 4 AS DIRECTED.
     Route: 058
     Dates: start: 202101

REACTIONS (1)
  - Neoplasm malignant [None]
